FAERS Safety Report 4848679-4 (Version None)
Quarter: 2005Q4

REPORT INFORMATION
  Report Type: 
  Country: None (occurrence: None)
  Receive Date: 20051208
  Receipt Date: 20051130
  Transmission Date: 20060501
  Serious: Yes (Hospitalization, Other)
  Sender: FDA-Public Use
  Company Number: US-JNJFOC-20051200541

PATIENT
  Sex: Male
  Weight: 103.42 kg

DRUGS (15)
  1. DURAGESIC-100 [Suspect]
     Route: 062
  2. FENTANYL [Suspect]
     Route: 062
  3. FENTANYL [Concomitant]
     Indication: PAIN
     Route: 037
  4. LORTAB [Concomitant]
     Route: 048
  5. LORTAB [Concomitant]
     Indication: PAIN
     Dosage: 10 MG HYDROCODONE/500 MG ACETAMINOPHEN, 6 IN 24 HOURS AS NEEDED, ORAL
     Route: 048
  6. OXYCODONE AND ACETAMINOPHEN [Concomitant]
     Route: 048
  7. OXYCODONE AND ACETAMINOPHEN [Concomitant]
     Indication: PAIN
     Dosage: 10 MG OXYCODONE/650 MG ACETAMINOPHEN, 6 IN 24 HOURS AS NEEDED, ORAL
     Route: 048
  8. DOCUSATE SODIUM [Concomitant]
     Indication: CONSTIPATION
     Route: 048
  9. ZOLOFT [Concomitant]
     Indication: DEPRESSION
     Route: 048
  10. TRAZODONE HCL [Concomitant]
     Route: 048
  11. RANITIDINE [Concomitant]
     Indication: GASTRIC DISORDER
     Route: 048
  12. CLONIDINE [Concomitant]
     Indication: PAIN
     Route: 037
  13. INDERAL [Concomitant]
     Route: 048
  14. FUROSEMIDE [Concomitant]
     Dosage: 20 MG, 1 TO 2 IN 24 HOURS AS NEEDED, ORAL
     Route: 048
  15. POTASSIUM CHLORIDE [Concomitant]
     Dosage: 10 MEQ, 1 IN 24 HOURS, AS NEEDED, ORAL
     Route: 048

REACTIONS (13)
  - APPLICATION SITE DERMATITIS [None]
  - APPLICATION SITE PRURITUS [None]
  - BRONCHITIS CHRONIC [None]
  - CHEST PAIN [None]
  - CONSTIPATION [None]
  - EMPHYSEMA [None]
  - HEADACHE [None]
  - MENINGITIS [None]
  - MOVEMENT DISORDER [None]
  - MUSCLE SPASMS [None]
  - NASOPHARYNGITIS [None]
  - SLEEP APNOEA SYNDROME [None]
  - WOLFF-PARKINSON-WHITE SYNDROME [None]
